FAERS Safety Report 25983142 (Version 1)
Quarter: 2025Q4

REPORT INFORMATION
  Report Type: Report from Study
  Country: IN (occurrence: IN)
  Receive Date: 20251031
  Receipt Date: 20251031
  Transmission Date: 20260118
  Serious: Yes (Other)
  Sender: ROCHE
  Company Number: IN-002147023-NVSC2025IN016905

PATIENT
  Sex: Male

DRUGS (1)
  1. RANIBIZUMAB [Suspect]
     Active Substance: RANIBIZUMAB
     Indication: Diabetic retinopathy
     Dosage: UNK
     Route: 050
     Dates: start: 20240716

REACTIONS (5)
  - Cataract [Unknown]
  - Vision blurred [Unknown]
  - Astigmatism [Unknown]
  - Presbyopia [Unknown]
  - Heterochromia iridis [Unknown]
